FAERS Safety Report 24821817 (Version 1)
Quarter: 2025Q1

REPORT INFORMATION
  Report Type: Spontaneous
  Country: US (occurrence: US)
  Receive Date: 20250108
  Receipt Date: 20250108
  Transmission Date: 20250409
  Serious: No
  Sender: SANOFI AVENTIS
  Company Number: US-SA-2025SA003744

PATIENT
  Age: 54 Year
  Sex: Female

DRUGS (9)
  1. REZUROCK [Suspect]
     Active Substance: BELUMOSUDIL
     Dosage: 200 MG, QD
     Route: 048
     Dates: start: 202412
  2. PREDNISONE [Suspect]
     Active Substance: PREDNISONE
  3. NYSTATIN [Suspect]
     Active Substance: NYSTATIN
     Indication: Tongue coated
  4. ACYCLOVIR [Concomitant]
     Active Substance: ACYCLOVIR
  5. CRESEMBA [Concomitant]
     Active Substance: ISAVUCONAZONIUM SULFATE
  6. ESTRADIOL [Concomitant]
     Active Substance: ESTRADIOL
  7. MONTELUKAST [Concomitant]
     Active Substance: MONTELUKAST
  8. WIXELA INHUB [Concomitant]
     Active Substance: FLUTICASONE PROPIONATE\SALMETEROL XINAFOATE
  9. AMOXICILLIN [Concomitant]
     Active Substance: AMOXICILLIN

REACTIONS (3)
  - Tongue coated [Unknown]
  - Dysgeusia [Unknown]
  - Sleep disorder [Unknown]
